FAERS Safety Report 9889357 (Version 1)
Quarter: 2014Q1

REPORT INFORMATION
  Report Type: Report from Study
  Country: US (occurrence: US)
  Receive Date: 20140211
  Receipt Date: 20140211
  Transmission Date: 20141002
  Serious: Yes (Hospitalization, Other)
  Sender: FDA-Public Use
  Company Number: US-ABBVIE-14P-163-1197460-00

PATIENT
  Age: 54 Year
  Sex: Female

DRUGS (8)
  1. HUMIRA [Suspect]
     Indication: CROHN^S DISEASE
     Dates: start: 20131111, end: 20140113
  2. IMURAN [Concomitant]
     Indication: PRODUCT USED FOR UNKNOWN INDICATION
  3. HYDROCHLOROTHIAZIDE [Concomitant]
     Indication: HYPERTENSION
  4. ATENOLOL [Concomitant]
     Indication: BLOOD PRESSURE
  5. OMEPRAZOLE [Concomitant]
     Indication: DYSPEPSIA
  6. CALCIUM [Concomitant]
     Indication: PRODUCT USED FOR UNKNOWN INDICATION
  7. MULTIVITAMIN FOR SENIORS [Concomitant]
     Indication: PRODUCT USED FOR UNKNOWN INDICATION
  8. QUESTRAN [Concomitant]
     Indication: PRODUCT USED FOR UNKNOWN INDICATION
     Dosage: EVERY AM WITH ORANGE JUICE

REACTIONS (8)
  - Local swelling [Not Recovered/Not Resolved]
  - Abscess limb [Not Recovered/Not Resolved]
  - Cellulitis [Not Recovered/Not Resolved]
  - Immunodeficiency [Unknown]
  - Staphylococcal infection [Not Recovered/Not Resolved]
  - Staphylococcal infection [Recovered/Resolved]
  - Laceration [Unknown]
  - Abscess limb [Unknown]
